FAERS Safety Report 16779647 (Version 1)
Quarter: 2019Q3

REPORT INFORMATION
  Report Type: Spontaneous
  Country: BE (occurrence: BE)
  Receive Date: 20190906
  Receipt Date: 20190906
  Transmission Date: 20191005
  Serious: Yes (Other)
  Sender: FDA-Public Use
  Company Number: BE-TEVA-2019-BE-1101789

PATIENT
  Sex: Male

DRUGS (1)
  1. FLUCONAZOLE 150 MG [Suspect]
     Active Substance: FLUCONAZOLE
     Dosage: 1 DOSAGE FORM/TOTAL
     Route: 048

REACTIONS (4)
  - Chills [Unknown]
  - Vertigo [Unknown]
  - Confusional state [Unknown]
  - Palpitations [Unknown]
